FAERS Safety Report 6300681-1 (Version None)
Quarter: 2009Q3

REPORT INFORMATION
  Report Type: 
  Country: None (occurrence: None)
  Receive Date: 20090807
  Receipt Date: 20090804
  Transmission Date: 20100115
  Serious: Yes (Other)
  Sender: FDA-Public Use
  Company Number: US-BIOGENIDEC-2009BI021332

PATIENT
  Age: 30 Year
  Sex: Female

DRUGS (7)
  1. TYSABRI [Suspect]
     Indication: MULTIPLE SCLEROSIS
     Route: 042
     Dates: start: 20090224, end: 20090416
  2. TYSABRI [Suspect]
     Route: 042
     Dates: start: 20090804
  3. SOLU-MEDROL [Concomitant]
     Route: 042
  4. VITAMIN TAB [Concomitant]
  5. FOLIC ACID [Concomitant]
  6. ZANTAC [Concomitant]
     Route: 042
  7. ACETAMINOPHEN [Concomitant]

REACTIONS (1)
  - ABORTION SPONTANEOUS [None]
